FAERS Safety Report 4323355-5 (Version None)
Quarter: 2004Q1

REPORT INFORMATION
  Report Type: 
  Country: None (occurrence: None)
  Receive Date: 20040322
  Receipt Date: 20040310
  Transmission Date: 20041129
  Serious: Yes (Hospitalization)
  Sender: FDA-Public Use
  Company Number: 2004-03-0639

PATIENT
  Age: 2 Year
  Sex: Male

DRUGS (1)
  1. CELESTONE [Suspect]
     Indication: LARYNGITIS
     Dates: start: 20040303

REACTIONS (5)
  - DIARRHOEA [None]
  - GASTROENTERITIS [None]
  - PHARYNGOLARYNGEAL PAIN [None]
  - VOMITING [None]
  - WEIGHT DECREASED [None]
